FAERS Safety Report 22779240 (Version 3)
Quarter: 2023Q4

REPORT INFORMATION
  Report Type: Spontaneous
  Country: US (occurrence: US)
  Receive Date: 20230802
  Receipt Date: 20231006
  Transmission Date: 20240110
  Serious: Yes (Hospitalization, Other)
  Sender: FDA-Public Use
  Company Number: US-KOREA IPSEN Pharma-2023-18551

PATIENT
  Sex: Male

DRUGS (1)
  1. DYSPORT [Suspect]
     Active Substance: ABOBOTULINUMTOXINA
     Indication: Product used for unknown indication
     Route: 065

REACTIONS (3)
  - Myositis [Unknown]
  - C-reactive protein increased [Unknown]
  - Cellulitis [Unknown]
